FAERS Safety Report 8166453-0 (Version None)
Quarter: 2012Q1

REPORT INFORMATION
  Report Type: 
  Country: None (occurrence: None)
  Receive Date: 20120227
  Receipt Date: 20110811
  Transmission Date: 20120608
  Serious: No
  Sender: FDA-Public Use
  Company Number: US-MYLANLABS-2011S1016838

PATIENT
  Age: 11 Year
  Sex: Male

DRUGS (7)
  1. AMNESTEEM [Suspect]
     Route: 048
     Dates: start: 20110808
  2. AMNESTEEM [Suspect]
     Indication: MEDULLOBLASTOMA
     Route: 048
     Dates: start: 20110501, end: 20110710
  3. CISPLATIN [Concomitant]
     Indication: MEDULLOBLASTOMA
     Dosage: PER PROTOCOL
     Route: 042
     Dates: start: 20110501
  4. VINCRISTINE [Concomitant]
     Indication: MEDULLOBLASTOMA
     Dosage: PER PROTOCOL
     Route: 042
     Dates: start: 20110501
  5. CYCLOPHOSPHAMIDE [Concomitant]
     Indication: MEDULLOBLASTOMA
     Dosage: PER PROTOCOL
     Route: 042
     Dates: start: 20110501
  6. AMNESTEEM [Suspect]
     Route: 048
     Dates: start: 20110501, end: 20110710
  7. AMNESTEEM [Suspect]
     Route: 048
     Dates: start: 20110808

REACTIONS (1)
  - BLOOD CALCIUM INCREASED [None]
